FAERS Safety Report 5252435-5 (Version None)
Quarter: 2007Q1

REPORT INFORMATION
  Report Type: 
  Country: None (occurrence: None)
  Receive Date: 20070301
  Receipt Date: 20061108
  Transmission Date: 20070707
  Serious: No
  Sender: FDA-Public Use
  Company Number: US-BRISTOL-MYERS SQUIBB COMPANY-13571203

PATIENT
  Age: 68 Year
  Sex: Male
  Weight: 117 kg

DRUGS (17)
  1. ERBITUX [Suspect]
     Indication: COLON CANCER
     Route: 042
     Dates: start: 20051201
  2. FLUOROURACIL [Concomitant]
  3. LEUCOVORIN CALCIUM [Concomitant]
  4. OXALIPLATIN [Concomitant]
  5. CAMPTOSAR [Concomitant]
  6. BENADRYL [Concomitant]
     Indication: PREMEDICATION
     Route: 042
  7. SPIRONOLACTONE [Concomitant]
  8. OS-CAL [Concomitant]
  9. CENTRUM SILVER [Concomitant]
  10. LOMOTIL [Concomitant]
  11. LASIX [Concomitant]
  12. VICODIN [Concomitant]
  13. MAGNESIUM OXIDE [Concomitant]
  14. ZINC [Concomitant]
  15. FERROUS SULFATE [Concomitant]
  16. DECADRON [Concomitant]
     Indication: PREMEDICATION
     Route: 042
  17. TAGAMET [Concomitant]
     Indication: PREMEDICATION
     Route: 042

REACTIONS (1)
  - HYPOMAGNESAEMIA [None]
